FAERS Safety Report 4672891-0 (Version None)
Quarter: 2005Q2

REPORT INFORMATION
  Report Type: 
  Country: None (occurrence: None)
  Receive Date: 20050523
  Receipt Date: 20050516
  Transmission Date: 20051028
  Serious: Yes (Hospitalization)
  Sender: FDA-Public Use
  Company Number: US-2005-006926

PATIENT
  Age: 49 Year
  Sex: Female
  Weight: 81.6 kg

DRUGS (4)
  1. BETASERON [Suspect]
     Indication: RELAPSING-REMITTING MULTIPLE SCLEROSIS
     Dosage: SUBCUTANEOUS
     Route: 058
     Dates: end: 20030901
  2. NORVASC [Concomitant]
  3. LISINOPRIL [Concomitant]
  4. PROTONIX ^WYETH-AYERST) PANTOPRAZOLE SODIUM [Concomitant]

REACTIONS (2)
  - INJECTION SITE CELLULITIS [None]
  - INJECTION SITE NECROSIS [None]
